FAERS Safety Report 6919313-4 (Version None)
Quarter: 2010Q3

REPORT INFORMATION
  Report Type: 
  Country: None (occurrence: None)
  Receive Date: 20100811
  Receipt Date: 20100805
  Transmission Date: 20110219
  Serious: Yes (Other)
  Sender: FDA-Public Use
  Company Number: A0874229A

PATIENT
  Age: 70 Year
  Sex: Male

DRUGS (2)
  1. ADVAIR DISKUS 100/50 [Suspect]
     Dosage: 1PUFF TWICE PER DAY
     Route: 055
     Dates: start: 20040101, end: 20100722
  2. HEART MEDICATION [Concomitant]

REACTIONS (3)
  - PNEUMONIA PRIMARY ATYPICAL [None]
  - PRODUCT QUALITY ISSUE [None]
  - PRODUCTIVE COUGH [None]
